FAERS Safety Report 19801726 (Version 2)
Quarter: 2021Q3

REPORT INFORMATION
  Report Type: Spontaneous
  Country: US (occurrence: US)
  Receive Date: 20210908
  Receipt Date: 20210919
  Transmission Date: 20211014
  Serious: No
  Sender: FDA-Public Use
  Company Number: US-SA-2021SA293165

PATIENT
  Age: 13 Year
  Sex: Male

DRUGS (1)
  1. CEREZYME [Suspect]
     Active Substance: IMIGLUCERASE
     Indication: GAUCHER^S DISEASE
     Dosage: 4000 IU, QOW
     Route: 042
     Dates: start: 202008

REACTIONS (5)
  - Impaired healing [Unknown]
  - Medical device change [Unknown]
  - Product dose omission issue [Unknown]
  - Vein disorder [Unknown]
  - Anxiety [Unknown]

NARRATIVE: CASE EVENT DATE: 202108
